FAERS Safety Report 13495804 (Version 1)
Quarter: 2017Q2

REPORT INFORMATION
  Report Type: Spontaneous
  Country: RU (occurrence: RU)
  Receive Date: 20170428
  Receipt Date: 20170428
  Transmission Date: 20170830
  Serious: Yes (Other)
  Sender: FDA-Public Use
  Company Number: RU-ASTRAZENECA-2017SE43689

PATIENT
  Age: 67 Year
  Sex: Female
  Weight: 72 kg

DRUGS (9)
  1. LASIX [Concomitant]
     Active Substance: FUROSEMIDE
     Dates: start: 20170310
  2. ATACAND [Concomitant]
     Active Substance: CANDESARTAN CILEXETIL
     Dates: start: 201612, end: 20170308
  3. LASIX [Concomitant]
     Active Substance: FUROSEMIDE
     Dates: start: 20170309
  4. MONOCINQUE [Concomitant]
     Active Substance: ISOSORBIDE MONONITRATE
  5. ATACAND PLUS [Suspect]
     Active Substance: CANDESARTAN CILEXETIL\HYDROCHLOROTHIAZIDE
     Indication: MYOCARDIAL INFARCTION
     Dosage: 16+12.5 MG
     Route: 048
     Dates: start: 20170308, end: 20170309
  6. ATACAND PLUS [Suspect]
     Active Substance: CANDESARTAN CILEXETIL\HYDROCHLOROTHIAZIDE
     Indication: MYOCARDIAL INFARCTION
     Dosage: HALF A TABLET (TOTAL 8+6.26 MG) DAILY
     Route: 048
     Dates: start: 20170309
  7. CARSIL [Concomitant]
     Active Substance: MILK THISTLE
  8. BETALOC ZOK [Concomitant]
     Active Substance: METOPROLOL SUCCINATE
  9. ATACAND [Concomitant]
     Active Substance: CANDESARTAN CILEXETIL
     Dates: start: 2014, end: 201612

REACTIONS (2)
  - Anuria [Recovering/Resolving]
  - Blood pressure inadequately controlled [Not Recovered/Not Resolved]

NARRATIVE: CASE EVENT DATE: 201703
